FAERS Safety Report 8954802 (Version 1)
Quarter: 2012Q4

REPORT INFORMATION
  Report Type: Spontaneous
  Country: US (occurrence: None)
  Receive Date: 20121111
  Receipt Date: 20121111
  Transmission Date: 20130627
  Serious: Yes (Hospitalization)
  Sender: FDA-Public Use
  Company Number: 2012-00378

PATIENT
  Age: 61 Year
  Sex: Female
  Weight: 81.65 kg

DRUGS (1)
  1. CEFDINIR [Suspect]
     Indication: BLADDER INFECTION
     Dosage: (300 mg, 2 in 1 D)
     Route: 048

REACTIONS (3)
  - Clostridium difficile colitis [None]
  - Gastrointestinal erosion [None]
  - Gastrointestinal disorder [None]
